FAERS Safety Report 7120527-1 (Version None)
Quarter: 2010Q4

REPORT INFORMATION
  Report Type: 
  Country: None (occurrence: None)
  Receive Date: 20101124
  Receipt Date: 20101117
  Transmission Date: 20110411
  Serious: Yes (Other)
  Sender: FDA-Public Use
  Company Number: NL-PFIZER INC-2010142087

PATIENT
  Age: 73 Year
  Sex: Female
  Weight: 88 kg

DRUGS (8)
  1. LIPITOR [Suspect]
     Dosage: 40 MG, 1X/DAY
     Dates: start: 20091113
  2. METOPROLOL - SLOW RELEASE [Concomitant]
     Dosage: 50 UNK, 1X/DAY
  3. HYDROCHLOROTHIAZIDE [Concomitant]
     Dosage: 12.5 UNK, 1X/DAY
  4. FOLIC ACID [Concomitant]
     Dosage: 5 MG, 1X/DAY
  5. DIOVAN [Concomitant]
     Dosage: 160 MG, 1X/DAY
  6. ACETYLSALICYLIC ACID [Concomitant]
     Dosage: 80 MG, 1X/DAY
  7. TOLBUTAMIDE [Concomitant]
     Dosage: 500 MG, 2X/DAY
  8. METFORMIN [Concomitant]
     Dosage: 850 MG, 3X/DAY

REACTIONS (2)
  - CHEST DISCOMFORT [None]
  - DYSPNOEA [None]
